FAERS Safety Report 11538463 (Version 4)
Quarter: 2016Q3

REPORT INFORMATION
  Report Type: Report from Study
  Country: US (occurrence: US)
  Receive Date: 20150922
  Receipt Date: 20160818
  Transmission Date: 20161109
  Serious: Yes (Other)
  Sender: FDA-Public Use
  Company Number: GXBR2015US001854

PATIENT
  Age: 47 Year
  Sex: Female
  Weight: 90.7 kg

DRUGS (6)
  1. GLATOPA [Suspect]
     Active Substance: GLATIRAMER ACETATE
     Indication: MULTIPLE SCLEROSIS
     Dosage: 20 MG, QD
     Route: 065
     Dates: start: 20150803
  2. GLUCOSAMINE [Concomitant]
     Active Substance: GLUCOSAMINE
     Indication: ARTHROPATHY
     Dosage: 1 DF, BID
     Route: 065
     Dates: start: 2014
  3. VITAMIN B [Concomitant]
     Active Substance: VITAMIN B
     Indication: BALANCE DISORDER
     Dosage: 1 DF, QD
     Route: 065
     Dates: start: 2014
  4. ESTROGEN [Concomitant]
     Active Substance: ESTRONE\SUS SCROFA OVARY
     Indication: PRODUCT USED FOR UNKNOWN INDICATION
     Dosage: UNK DF, UNK
     Route: 061
  5. VITAMIN D3 [Concomitant]
     Active Substance: CHOLECALCIFEROL
     Indication: BALANCE DISORDER
     Dosage: 1 DF, QD
     Route: 065
     Dates: start: 2014
  6. ZOLOFT [Concomitant]
     Active Substance: SERTRALINE HYDROCHLORIDE
     Indication: DEPRESSION
     Dosage: 1 DF, QD
     Route: 065
     Dates: start: 2014

REACTIONS (9)
  - Fatigue [Unknown]
  - Dyspnoea [Unknown]
  - Injection site vesicles [Not Recovered/Not Resolved]
  - Asthenia [Unknown]
  - Pruritus [Unknown]
  - Flushing [Unknown]
  - Somnolence [Not Recovered/Not Resolved]
  - Injection site bruising [Not Recovered/Not Resolved]
  - Swelling [Unknown]

NARRATIVE: CASE EVENT DATE: 20150803
